FAERS Safety Report 6907284-6 (Version None)
Quarter: 2010Q3

REPORT INFORMATION
  Report Type: 
  Country: None (occurrence: None)
  Receive Date: 20100730
  Receipt Date: 20100720
  Transmission Date: 20110219
  Serious: Yes (Hospitalization)
  Sender: FDA-Public Use
  Company Number: 015883

PATIENT
  Sex: Male
  Weight: 90.7 kg

DRUGS (4)
  1. LACOSAMIDE [Suspect]
     Indication: CONVULSION
     Dosage: 100 MG BID, AM/PM ORAL, 150 MG BID ORAL
     Route: 048
     Dates: end: 20100719
  2. LACOSAMIDE [Suspect]
     Indication: CONVULSION
     Dosage: 100 MG BID, AM/PM ORAL, 150 MG BID ORAL
     Route: 048
     Dates: start: 20100720
  3. DEPAKOTE ER [Concomitant]
  4. VALIUM [Concomitant]

REACTIONS (2)
  - CONVULSION [None]
  - FACE INJURY [None]
